FAERS Safety Report 7581555-5 (Version None)
Quarter: 2011Q2

REPORT INFORMATION
  Report Type: 
  Country: None (occurrence: None)
  Receive Date: 20110629
  Receipt Date: 20110622
  Transmission Date: 20111010
  Serious: Yes (Death, Hospitalization, Other)
  Sender: FDA-Public Use
  Company Number: PHHY2011DE41737

PATIENT
  Sex: Male

DRUGS (17)
  1. FUROSEMIDE [Concomitant]
     Indication: CARDIAC FAILURE
     Dosage: 250 MG, QD
     Route: 048
     Dates: start: 20081024
  2. DIOVAN [Suspect]
     Indication: CARDIAC FAILURE
  3. CALCIUM ANTAGONIST [Concomitant]
  4. METFORMIN HCL [Concomitant]
     Indication: DIABETES MELLITUS
     Dosage: 1700 MG, QD
     Route: 048
     Dates: start: 20060906
  5. MIRTAZAPINE [Concomitant]
     Indication: SLEEP DISORDER
  6. DIURETICS [Concomitant]
  7. ORAL ANTIDIABETICS [Concomitant]
     Indication: DIABETES MELLITUS
  8. AZUPROSTAT [Concomitant]
     Indication: BENIGN PROSTATIC HYPERPLASIA
     Dosage: 460 MG, QD
     Route: 048
     Dates: start: 20101021
  9. ALISKIREN [Suspect]
     Indication: HYPERTENSION
     Dosage: 150 MG, QD
     Route: 048
     Dates: start: 20090409, end: 20100602
  10. FUROSEMIDE [Concomitant]
     Indication: RENAL FAILURE
  11. MIRTAZAPINE [Concomitant]
     Indication: DEPRESSION
     Dosage: 15 MG, QD
     Route: 048
     Dates: start: 20100329
  12. DIOVAN [Suspect]
     Indication: HYPERTENSION
     Dosage: 160 MG, QD
     Route: 048
     Dates: start: 20100602
  13. SYMBICORT [Concomitant]
     Indication: CHRONIC OBSTRUCTIVE PULMONARY DISEASE
     Dosage: UNK
     Dates: start: 20100210
  14. SPIRIVA [Concomitant]
     Indication: CHRONIC OBSTRUCTIVE PULMONARY DISEASE
     Dosage: 18 UG, QD
     Dates: start: 20090720
  15. ISON [Concomitant]
     Indication: CORONARY ARTERY DISEASE
     Dosage: 120 MG, QD
     Route: 048
     Dates: start: 19950301
  16. NSAID'S [Concomitant]
  17. ALLOPURINOL [Concomitant]
     Indication: HYPERURICAEMIA
     Dosage: 100 MG, QD
     Route: 048
     Dates: start: 20101206

REACTIONS (9)
  - BENIGN PROSTATIC HYPERPLASIA [None]
  - HYPERURICAEMIA [None]
  - DEPRESSION [None]
  - CARDIOGENIC SHOCK [None]
  - SLEEP DISORDER [None]
  - ACUTE MYOCARDIAL INFARCTION [None]
  - BLOOD PRESSURE DECREASED [None]
  - VENTRICULAR FIBRILLATION [None]
  - LUNG INFECTION [None]
